FAERS Safety Report 9551381 (Version 1)
Quarter: 2013Q3

REPORT INFORMATION
  Report Type: Spontaneous
  Country: US (occurrence: None)
  Receive Date: 20130923
  Receipt Date: 20130923
  Transmission Date: 20140515
  Serious: Yes (Hospitalization)
  Sender: FDA-Public Use
  Company Number: None

PATIENT
  Age: 64 Year
  Sex: Male
  Weight: 85 kg

DRUGS (1)
  1. HIZENTRA [Suspect]
     Route: 058
     Dates: start: 20130823

REACTIONS (3)
  - Cellulitis [None]
  - Dyspnoea [None]
  - Pancreatitis [None]
